FAERS Safety Report 4573145-3 (Version None)
Quarter: 2005Q1

REPORT INFORMATION
  Report Type: 
  Country: None (occurrence: None)
  Receive Date: 20050208
  Receipt Date: 20040720
  Transmission Date: 20050727
  Serious: No
  Sender: FDA-Public Use
  Company Number: US-GLAXOSMITHKLINE-A0519045A

PATIENT
  Age: 38 Year
  Sex: Male

DRUGS (2)
  1. PAROXETINE HCL [Suspect]
     Indication: DEPRESSION
     Route: 048
     Dates: start: 20040401, end: 20040718
  2. XANAX [Concomitant]

REACTIONS (2)
  - DIZZINESS [None]
  - NAUSEA [None]
